FAERS Safety Report 6565928-5 (Version None)
Quarter: 2010Q1

REPORT INFORMATION
  Report Type: 
  Country: None (occurrence: None)
  Receive Date: 20100129
  Receipt Date: 20100129
  Transmission Date: 20100710
  Serious: Yes (Hospitalization, Disabling)
  Sender: FDA-Public Use
  Company Number: None

PATIENT
  Age: 30 Year
  Sex: Female
  Weight: 65.7716 kg

DRUGS (1)
  1. MIRENA [Suspect]
     Indication: CONTRACEPTION
     Dosage: LEVONORGESTREL-RELEASING DAILY INTRA-UTERINE
     Route: 015
     Dates: start: 20090820, end: 20090823

REACTIONS (3)
  - COMPLICATION OF DEVICE INSERTION [None]
  - DEVICE DISLOCATION [None]
  - UTERINE PERFORATION [None]
